FAERS Safety Report 8486142 (Version 6)
Quarter: 2013Q2

REPORT INFORMATION
  Report Type: Spontaneous
  Country: US (occurrence: US)
  Receive Date: 20120402
  Receipt Date: 20130503
  Transmission Date: 20140414
  Serious: Yes (Hospitalization, Other)
  Sender: FDA-Public Use
  Company Number: US-BIOGENIDEC-2012BI010450

PATIENT
  Age: 59 Year
  Sex: Female

DRUGS (5)
  1. AVONEX [Suspect]
     Indication: MULTIPLE SCLEROSIS
     Route: 030
     Dates: start: 20050101
  2. AVONEX [Suspect]
     Indication: MULTIPLE SCLEROSIS
     Route: 030
     Dates: start: 20120426
  3. AVONEX [Suspect]
     Indication: MULTIPLE SCLEROSIS
     Route: 030
     Dates: start: 20120912
  4. TYLENOL [Concomitant]
     Indication: THERAPEUTIC PROCEDURE
  5. IBUPROFEN [Concomitant]
     Indication: THERAPEUTIC PROCEDURE

REACTIONS (3)
  - Adenocarcinoma [Not Recovered/Not Resolved]
  - Malignant anorectal neoplasm [Recovered/Resolved]
  - Thrombosis [Recovered/Resolved]
